FAERS Safety Report 12863099 (Version 1)
Quarter: 2016Q4

REPORT INFORMATION
  Report Type: Spontaneous
  Country: BR (occurrence: BR)
  Receive Date: 20161019
  Receipt Date: 20161019
  Transmission Date: 20170207
  Serious: Yes (Other)
  Sender: FDA-Public Use
  Company Number: BR-ELI_LILLY_AND_COMPANY-BR201608002650

PATIENT
  Sex: Female
  Weight: 66 kg

DRUGS (5)
  1. HUMALOG [Suspect]
     Active Substance: INSULIN LISPRO
     Indication: DIABETES MELLITUS
     Dosage: 8 IU, AT BREAKFAST
     Route: 065
     Dates: start: 20160623, end: 20160921
  2. HUMALOG [Suspect]
     Active Substance: INSULIN LISPRO
     Dosage: 10 IU, AT LUNCH
     Route: 065
     Dates: start: 20160623, end: 20160921
  3. HUMALOG [Suspect]
     Active Substance: INSULIN LISPRO
     Dosage: 12 IU, AT DINNER
     Route: 065
     Dates: start: 20160623, end: 20160921
  4. HUMULIN N [Suspect]
     Active Substance: INSULIN HUMAN
     Indication: DIABETES MELLITUS
     Dosage: 20 IU, AT NIGHT
     Route: 065
     Dates: start: 20160623, end: 20160921
  5. GLIFAGE [Concomitant]
     Active Substance: METFORMIN HYDROCHLORIDE
     Indication: DIABETES MELLITUS
     Dosage: UNK, UNKNOWN
     Route: 065

REACTIONS (5)
  - Drug dose omission [Not Recovered/Not Resolved]
  - Blood glucose increased [Unknown]
  - Maternal exposure during pregnancy [Recovered/Resolved]
  - Premature rupture of membranes [Recovered/Resolved]
  - Exposure during breast feeding [Unknown]
